FAERS Safety Report 5026238-0 (Version None)
Quarter: 2006Q2

REPORT INFORMATION
  Report Type: 
  Country: None (occurrence: None)
  Receive Date: 20060614
  Receipt Date: 20060525
  Transmission Date: 20061013
  Serious: Yes (Other)
  Sender: FDA-Public Use
  Company Number: PT-ABBOTT-06P-130-0334271-00

PATIENT
  Sex: Male

DRUGS (1)
  1. KLACID OD [Suspect]
     Indication: TOOTH ABSCESS
     Route: 048
     Dates: start: 20060523, end: 20060524

REACTIONS (6)
  - CHEST DISCOMFORT [None]
  - DIZZINESS [None]
  - DYSPNOEA [None]
  - HEADACHE [None]
  - MUSCULAR WEAKNESS [None]
  - PYREXIA [None]
